FAERS Safety Report 20727930 (Version 2)
Quarter: 2022Q3

REPORT INFORMATION
  Report Type: Spontaneous
  Country: CN (occurrence: CN)
  Receive Date: 20220419
  Receipt Date: 20220715
  Transmission Date: 20221026
  Serious: Yes (Death, Other)
  Sender: FDA-Public Use
  Company Number: CN-BAXTER-2022BAX008570

PATIENT
  Age: 74 Year
  Sex: Female

DRUGS (15)
  1. DOXORUBICIN [Suspect]
     Active Substance: DOXORUBICIN
     Indication: Plasma cell myeloma
     Dosage: 60 MG/M2, 2 CYCLICAL, LIPOSOMAL DOXORUBICIN 30 MG/M2 ON DAY 1, DARATUMUMAB + PAD
     Route: 065
     Dates: start: 20200625
  2. BORTEZOMIB [Suspect]
     Active Substance: BORTEZOMIB
     Indication: Plasma cell myeloma
     Dosage: 5.2 MG/M2, 1 CYCLICAL, 1.3 MG/M2 ON DAYS 1, 8, 15 AND 22, VD REGIMEN
     Route: 065
     Dates: start: 20191230, end: 2020
  3. BORTEZOMIB [Suspect]
     Active Substance: BORTEZOMIB
     Dosage: 10.4 MG/M2, 2 CYCLICAL, BORTEZOMIB 1.3 MG/M2 ON DAYS 1, 4, 8, AND 11, DARATUMUMAB + PAD
     Route: 065
     Dates: start: 20200625
  4. IXAZOMIB [Suspect]
     Active Substance: IXAZOMIB
     Indication: Plasma cell myeloma
     Dosage: 12 MG, 1 CYCLICAL, IXAZOMIB 4 MG ON DAYS 1, 8, AND 15, ID REGIMEN
     Route: 065
     Dates: start: 202005
  5. DEXAMETHASONE [Suspect]
     Active Substance: DEXAMETHASONE
     Indication: Plasma cell myeloma
     Dosage: 162 MG, 1 CYCLICAL, 20.25 MG ON DAYS 1, 2, 8, 9, 15, 16, 22 AND 23, VD REGIMEN
     Route: 065
     Dates: start: 20191230
  6. DEXAMETHASONE [Suspect]
     Active Substance: DEXAMETHASONE
     Indication: Chills
     Dosage: 162 MG, 1 CYCLICAL, 20.25 MG ON DAYS 1, 2, 4, 5, 8,9, 11 AND 12, RD REGIMEN
     Route: 065
     Dates: start: 202004, end: 202004
  7. DEXAMETHASONE [Suspect]
     Active Substance: DEXAMETHASONE
     Indication: Temperature intolerance
     Dosage: UNK
     Route: 065
     Dates: start: 202005
  8. DEXAMETHASONE [Suspect]
     Active Substance: DEXAMETHASONE
     Indication: Pyrexia
     Dosage: 324 MG, 2 CYCLICAL, 20.25 MG ON THE DAYS 1, 2, 8, 9, 15, 16, 22 AND 23, DARATUMUMAB + PAD
     Route: 065
     Dates: start: 202005
  9. DEXAMETHASONE [Suspect]
     Active Substance: DEXAMETHASONE
     Dosage: 162 MG, 1 CYCLICAL, 20.25 MG ON DAYS 1, 2, 4, 5, 8,9, 11 AND 12, ID REGIMEN
     Route: 065
     Dates: start: 202005
  10. LENALIDOMIDE [Suspect]
     Active Substance: LENALIDOMIDE
     Indication: Plasma cell myeloma
     Dosage: 210 MG, 1 CYCLICAL, 10 MG FROM DAYS 1 TO 21, RD REGIMEN
     Route: 065
     Dates: start: 201904, end: 202004
  11. LENALIDOMIDE [Suspect]
     Active Substance: LENALIDOMIDE
     Dosage: DAYS 1 TO 21
     Route: 065
     Dates: start: 202004
  12. DARATUMUMAB [Suspect]
     Active Substance: DARATUMUMAB
     Indication: Plasma cell myeloma
     Dosage: 128 MG/KG, 2 CYCLICAL, DARATUMUMAB 16 MG/KG ON DAYS 1, 8, 15 AND 22, DARATUMUMAB + PAD
     Route: 065
     Dates: start: 20200625
  13. METHYLPREDNISOLONE [Suspect]
     Active Substance: METHYLPREDNISOLONE
     Indication: Chills
     Dosage: UNK
     Route: 065
     Dates: start: 202005
  14. METHYLPREDNISOLONE [Suspect]
     Active Substance: METHYLPREDNISOLONE
     Indication: Temperature intolerance
  15. METHYLPREDNISOLONE [Suspect]
     Active Substance: METHYLPREDNISOLONE
     Indication: Pyrexia

REACTIONS (5)
  - Death [Fatal]
  - Plasma cell myeloma [Fatal]
  - Treatment noncompliance [Fatal]
  - Myelosuppression [Recovering/Resolving]
  - Drug intolerance [Recovered/Resolved]

NARRATIVE: CASE EVENT DATE: 20200101
